FAERS Safety Report 6520380-0 (Version None)
Quarter: 2009Q4

REPORT INFORMATION
  Report Type: 
  Country: None (occurrence: None)
  Receive Date: 20091229
  Receipt Date: 20090128
  Transmission Date: 20100525
  Serious: Yes (Death)
  Sender: FDA-Public Use
  Company Number: US-JNJFOC-20090100801

PATIENT
  Sex: Female
  Weight: 97.98 kg

DRUGS (9)
  1. REMICADE [Suspect]
     Indication: ANKYLOSING SPONDYLITIS
     Route: 042
  2. LYRICA [Concomitant]
  3. LISINOPRIL [Concomitant]
  4. HYDROCODONE [Concomitant]
  5. HYDROCHLOROTHIAZIDE [Concomitant]
  6. GABAPENTIN [Concomitant]
  7. CELEXA [Concomitant]
  8. DICLOFENAC [Concomitant]
  9. ELAVIL [Concomitant]

REACTIONS (1)
  - SUDDEN CARDIAC DEATH [None]
